FAERS Safety Report 10062891 (Version 2)
Quarter: 2014Q2

REPORT INFORMATION
  Report Type: Spontaneous
  Country: DK (occurrence: CH)
  Receive Date: 20140407
  Receipt Date: 20140410
  Transmission Date: 20141212
  Serious: Yes (Other)
  Sender: FDA-Public Use
  Company Number: CH-FRI-1000066177

PATIENT
  Age: 36 Year
  Sex: Female

DRUGS (2)
  1. ESCITALOPRAM [Suspect]
     Indication: FATIGUE
     Dosage: 10 MG
     Route: 048
  2. TYSABRI [Suspect]
     Indication: RELAPSING-REMITTING MULTIPLE SCLEROSIS
     Dosage: 10 MG
     Route: 050
     Dates: end: 201402

REACTIONS (2)
  - Erythema nodosum [Recovered/Resolved]
  - Off label use [Not Recovered/Not Resolved]
